FAERS Safety Report 25330536 (Version 3)
Quarter: 2025Q3

REPORT INFORMATION
  Report Type: Spontaneous
  Country: US (occurrence: US)
  Receive Date: 20250519
  Receipt Date: 20250811
  Transmission Date: 20251020
  Serious: Yes (Other)
  Sender: BAUSCH AND LOMB
  Company Number: US-BAUSCH-BL-2025-006090

PATIENT
  Age: 50 Year
  Sex: Female

DRUGS (1)
  1. SILIQ [Suspect]
     Active Substance: BRODALUMAB
     Indication: Product used for unknown indication
     Route: 065
     Dates: start: 202104, end: 2025

REACTIONS (1)
  - Autoimmune hepatitis [Unknown]
